FAERS Safety Report 25633062 (Version 2)
Quarter: 2025Q3

REPORT INFORMATION
  Report Type: Spontaneous
  Country: US (occurrence: US)
  Receive Date: 20250801
  Receipt Date: 20250918
  Transmission Date: 20251021
  Serious: Yes (Hospitalization)
  Sender: SAREPTA THERAPEUTICS
  Company Number: US-SAREPTA THERAPEUTICS INC.-SRP2025-006288

PATIENT
  Age: 42 Year
  Sex: Male

DRUGS (1)
  1. AMONDYS 45 [Suspect]
     Active Substance: CASIMERSEN
     Indication: Product used for unknown indication
     Route: 042
     Dates: start: 2023, end: 20250710

REACTIONS (5)
  - Sepsis [Recovered/Resolved]
  - Septic shock [Recovered/Resolved]
  - Bacteraemia [Recovered/Resolved]
  - Nausea [Recovered/Resolved]
  - Pyrexia [Recovered/Resolved]

NARRATIVE: CASE EVENT DATE: 20250710
